FAERS Safety Report 19786129 (Version 1)
Quarter: 2021Q3

REPORT INFORMATION
  Report Type: Spontaneous
  Country: US (occurrence: US)
  Receive Date: 20210903
  Receipt Date: 20210903
  Transmission Date: 20211014
  Serious: Yes (Hospitalization, Other)
  Sender: FDA-Public Use
  Company Number: NVSC2021US199584

PATIENT
  Age: 73 Year
  Sex: Male

DRUGS (2)
  1. DILTIAZEM. [Suspect]
     Active Substance: DILTIAZEM
     Indication: ATRIAL FIBRILLATION
     Dosage: UNK
     Route: 065
  2. DILTIAZEM. [Suspect]
     Active Substance: DILTIAZEM
     Indication: ISCHAEMIC CARDIOMYOPATHY

REACTIONS (3)
  - Stevens-Johnson syndrome [Recovered/Resolved]
  - Product use in unapproved indication [Unknown]
  - Dermatitis exfoliative [Recovered/Resolved]
